FAERS Safety Report 5736765-6 (Version None)
Quarter: 2008Q2

REPORT INFORMATION
  Report Type: 
  Country: None (occurrence: None)
  Receive Date: 20080508
  Receipt Date: 20080425
  Transmission Date: 20081010
  Serious: Yes (Hospitalization)
  Sender: FDA-Public Use
  Company Number: 190006L08FRA

PATIENT
  Age: 30 Year
  Sex: Female

DRUGS (2)
  1. MENOTROPHIN(MENOTROPHIN) [Suspect]
     Indication: IN VITRO FERTILISATION
  2. CHORIONIC GONADOTROPIN [Suspect]
     Indication: IN VITRO FERTILISATION

REACTIONS (6)
  - BLOOD FIBRINOGEN INCREASED [None]
  - ESCHERICHIA INFECTION [None]
  - INFLAMMATION [None]
  - PERITONITIS [None]
  - PULMONARY EMBOLISM [None]
  - THROMBOCYTHAEMIA [None]
